FAERS Safety Report 6470702-4 (Version None)
Quarter: 2009Q4

REPORT INFORMATION
  Report Type: 
  Country: None (occurrence: None)
  Receive Date: 20091203
  Receipt Date: 20091130
  Transmission Date: 20100525
  Serious: Yes (Hospitalization)
  Sender: FDA-Public Use
  Company Number: A0815435B

PATIENT
  Age: 57 Year
  Sex: Male
  Weight: 72 kg

DRUGS (18)
  1. MELPHALAN [Suspect]
     Indication: AMYLOIDOSIS
     Dates: start: 20090925, end: 20090926
  2. VELCADE [Suspect]
     Indication: AMYLOIDOSIS
  3. DEXAMETHASONE TAB [Suspect]
     Indication: AMYLOIDOSIS
  4. CELLCEPT [Concomitant]
  5. SIROLIMUS [Concomitant]
  6. SYNTHROID [Concomitant]
  7. PRILOSEC [Concomitant]
  8. PRAVASTATIN [Concomitant]
  9. VALGANCICLOVIR HCL [Concomitant]
  10. PREDNISONE [Concomitant]
  11. CITRACAL [Concomitant]
  12. FERROUS GLUCONATE [Concomitant]
  13. ASPIRIN [Concomitant]
  14. VITAMIN B6 [Concomitant]
  15. LANTUS [Concomitant]
  16. NOVOLOG [Concomitant]
  17. LEVAQUIN [Concomitant]
  18. ISONIAZID [Concomitant]
     Indication: TUBERCULOSIS

REACTIONS (3)
  - COUGH [None]
  - INFECTION [None]
  - PRODUCTIVE COUGH [None]
